FAERS Safety Report 8720830 (Version 3)
Quarter: 2013Q1

REPORT INFORMATION
  Report Type: Spontaneous
  Country: US (occurrence: US)
  Receive Date: 20120813
  Receipt Date: 20130314
  Transmission Date: 20140127
  Serious: Yes (Hospitalization, Other)
  Sender: FDA-Public Use
  Company Number: US-009507513-1208USA002049

PATIENT
  Sex: Female

DRUGS (5)
  1. FOSAMAX [Suspect]
     Indication: OSTEOPENIA
     Dosage: 10 MG, UNK
     Route: 048
     Dates: start: 199908, end: 200102
  2. FOSAMAX [Suspect]
     Dosage: 70 MG, UNK
     Route: 048
     Dates: start: 200103, end: 200802
  3. CALCIUM (UNSPECIFIED) [Concomitant]
     Dosage: 100 MG, UNK
     Dates: start: 1999
  4. PROAIR (ALBUTEROL SULFATE) [Concomitant]
     Indication: ASTHMA
     Dosage: UNK
     Dates: start: 1975
  5. FOSAMAX [Suspect]
     Indication: OSTEOPENIA
     Dosage: 70 MG, QW
     Dates: start: 200803, end: 201011

REACTIONS (19)
  - Intramedullary rod insertion [Recovered/Resolved]
  - Femur fracture [Recovered/Resolved]
  - Femur fracture [Recovered/Resolved]
  - Low turnover osteopathy [Unknown]
  - Drug intolerance [Unknown]
  - Vitamin D deficiency [Unknown]
  - Haematuria [Unknown]
  - Scoliosis [Unknown]
  - Uterine leiomyoma [Unknown]
  - Ovarian cyst [Unknown]
  - Pain [Unknown]
  - Sleep disorder [Unknown]
  - Arthritis [Unknown]
  - Anxiety [Unknown]
  - Migraine [Unknown]
  - Dry eye [Unknown]
  - Skin cosmetic procedure [Unknown]
  - Skin cosmetic procedure [Unknown]
  - Hypersensitivity [Unknown]
